FAERS Safety Report 5877174-9 (Version None)
Quarter: 2008Q3

REPORT INFORMATION
  Report Type: 
  Country: None (occurrence: None)
  Receive Date: 20080909
  Receipt Date: 20080909
  Transmission Date: 20090109
  Serious: Yes (Life-Threatening, Hospitalization, Other)
  Sender: FDA-Public Use
  Company Number: None

PATIENT
  Age: 65 Year
  Sex: Male
  Weight: 90.7194 kg

DRUGS (2)
  1. PLAVIX [Suspect]
     Indication: MYOCARDIAL INFARCTION
     Dosage: 75MG 1 A DAY
     Dates: start: 20080402, end: 20080721
  2. PLAVIX [Suspect]
     Indication: STENT PLACEMENT
     Dosage: 75MG 1 A DAY
     Dates: start: 20080402, end: 20080721

REACTIONS (5)
  - DRUG HYPERSENSITIVITY [None]
  - INCREASED TENDENCY TO BRUISE [None]
  - LEUKOCYTOCLASTIC VASCULITIS [None]
  - OEDEMA PERIPHERAL [None]
  - STAPHYLOCOCCAL INFECTION [None]
